FAERS Safety Report 4665945-6 (Version None)
Quarter: 2005Q2

REPORT INFORMATION
  Report Type: 
  Country: None (occurrence: None)
  Receive Date: 20050517
  Receipt Date: 20050517
  Transmission Date: 20051028
  Serious: Yes (Life-Threatening, Hospitalization)
  Sender: FDA-Public Use
  Company Number: None

PATIENT
  Age: 15 Year
  Sex: Female
  Weight: 44.4525 kg

DRUGS (1)
  1. ZONEGRAN [Suspect]
     Indication: EPILEPSY
     Dates: start: 20031001, end: 20050107

REACTIONS (4)
  - DEPRESSION [None]
  - HYPERPHAGIA [None]
  - SUICIDAL IDEATION [None]
  - SUICIDE ATTEMPT [None]
